FAERS Safety Report 9655061 (Version 1)
Quarter: 2013Q4

REPORT INFORMATION
  Report Type: Spontaneous
  Country: US (occurrence: US)
  Receive Date: 20131029
  Receipt Date: 20131029
  Transmission Date: 20140711
  Serious: No
  Sender: FDA-Public Use
  Company Number: US-PURDUE-USA-2012-0093064

PATIENT
  Sex: Female

DRUGS (2)
  1. OXYCONTIN (NDA 22-272) [Suspect]
     Indication: PAIN
     Dosage: 30 MG, Q8H
     Route: 048
     Dates: start: 20120906, end: 20120906
  2. LISINOPRIL [Concomitant]
     Indication: BLOOD PRESSURE
     Dosage: 20 MG, BID
     Route: 048

REACTIONS (6)
  - Vomiting [Unknown]
  - Pruritus generalised [Unknown]
  - Tremor [Unknown]
  - Headache [Unknown]
  - Hypersensitivity [Unknown]
  - Dyspnoea [Unknown]
